FAERS Safety Report 8646590 (Version 8)
Quarter: 2016Q3

REPORT INFORMATION
  Report Type: Spontaneous
  Country: US (occurrence: US)
  Receive Date: 20120702
  Receipt Date: 20160919
  Transmission Date: 20161109
  Serious: Yes (Hospitalization, Disabling, Other)
  Sender: FDA-Public Use
  Company Number: US-009507513-1207USA00053

PATIENT
  Sex: Female
  Weight: 70.3 kg

DRUGS (7)
  1. FOSAMAX [Suspect]
     Active Substance: ALENDRONATE SODIUM
     Indication: OSTEOPOROSIS
     Dosage: 70 MG, QW
     Route: 048
     Dates: start: 20010224, end: 20080324
  2. SYNTHROID [Concomitant]
     Active Substance: LEVOTHYROXINE SODIUM
     Indication: HYPOTHYROIDISM
     Dosage: UNK, UNKNOWN
     Route: 048
  3. CALCIUM (UNSPECIFIED) [Concomitant]
     Active Substance: CALCIUM
     Indication: PRODUCT USED FOR UNKNOWN INDICATION
     Dosage: UNK UNK, UNKNOWN
     Route: 065
     Dates: start: 1982
  4. FOSAMAX PLUS D [Suspect]
     Active Substance: ALENDRONATE SODIUM\CHOLECALCIFEROL
     Indication: OSTEOPENIA
     Dosage: UNK, UNKNOWN
     Route: 048
  5. FOSAMAX [Suspect]
     Active Substance: ALENDRONATE SODIUM
     Indication: OSTEOPENIA
     Dosage: 10 MG, UNK
     Route: 048
     Dates: start: 19971110, end: 20010223
  6. FOSAMAX PLUS D [Suspect]
     Active Substance: ALENDRONATE SODIUM\CHOLECALCIFEROL
     Indication: OSTEOPOROSIS
  7. LEVOXYL [Concomitant]
     Active Substance: LEVOTHYROXINE SODIUM
     Indication: HYPOTHYROIDISM
     Dosage: 0.15-0.175 MG, QD
     Route: 048

REACTIONS (92)
  - Bone graft [Unknown]
  - Hip arthroplasty [Unknown]
  - Palpitations [Unknown]
  - Limb injury [Unknown]
  - Weight increased [Unknown]
  - Electrocardiogram abnormal [Unknown]
  - International normalised ratio decreased [Recovering/Resolving]
  - Fatigue [Unknown]
  - Ventricular extrasystoles [Unknown]
  - Stress fracture [Unknown]
  - Chest discomfort [Unknown]
  - Lymphadenopathy [Unknown]
  - Pulmonary valve incompetence [Unknown]
  - Aspiration [Unknown]
  - Bradycardia [Unknown]
  - Anaemia postoperative [Unknown]
  - Osteoarthritis [Unknown]
  - Hyperthyroidism [Unknown]
  - Adverse event [Unknown]
  - Hip arthroplasty [Unknown]
  - Anaesthetic complication [Recovered/Resolved]
  - Impaired healing [Unknown]
  - Knee arthroplasty [Unknown]
  - Hypertension [Unknown]
  - Mitral valve incompetence [Unknown]
  - Scoliosis [Unknown]
  - Aortic valve sclerosis [Unknown]
  - Aortic stenosis [Unknown]
  - Pulmonary mass [Recovered/Resolved]
  - Neuropathy peripheral [Unknown]
  - Chondrocalcinosis [Unknown]
  - Tendon disorder [Unknown]
  - Pain in extremity [Unknown]
  - Femur fracture [Unknown]
  - Hip arthroplasty [Unknown]
  - Anaemia postoperative [Unknown]
  - Appendicectomy [Unknown]
  - Femur fracture [Recovered/Resolved]
  - Cellulitis [Unknown]
  - Blood immunoglobulin M [Unknown]
  - Insomnia [Unknown]
  - Spinal osteoarthritis [Unknown]
  - Adenomatous polyposis coli [Unknown]
  - Seborrhoeic keratosis [Unknown]
  - Depression [Unknown]
  - Chest pain [Unknown]
  - Asthenia [Unknown]
  - Open reduction of fracture [Unknown]
  - Bone density decreased [Unknown]
  - Metastases to bone marrow [Unknown]
  - Bursitis [Unknown]
  - Osteoarthritis [Unknown]
  - Gout [Unknown]
  - Diverticulitis [Unknown]
  - Pulmonary mass [Unknown]
  - Blood cholesterol increased [Unknown]
  - Femur fracture [Unknown]
  - Colon cancer [Unknown]
  - Left atrial enlargement [Unknown]
  - Chest pain [Unknown]
  - Cardiac failure congestive [Unknown]
  - Nail discolouration [Unknown]
  - Hyperlipidaemia [Unknown]
  - Tricuspid valve incompetence [Unknown]
  - Ventricular extrasystoles [Unknown]
  - Arthropathy [Unknown]
  - Dyspnoea exertional [Unknown]
  - Back pain [Unknown]
  - Constipation [Unknown]
  - Osteoporosis [Unknown]
  - Tonsillectomy [Unknown]
  - Non-Hodgkin^s lymphoma [Unknown]
  - Pneumonia [Unknown]
  - Osteopetrosis [Unknown]
  - Diverticulum [Unknown]
  - Cardiac murmur [Unknown]
  - Upper respiratory tract infection [Unknown]
  - Ventricular extrasystoles [Unknown]
  - Accident [Unknown]
  - Ventricular extrasystoles [Unknown]
  - Myalgia [Unknown]
  - Oedema peripheral [Unknown]
  - Systemic lupus erythematosus [Unknown]
  - Endodontic procedure [Unknown]
  - Device failure [Unknown]
  - Cardiac aneurysm [Unknown]
  - Vitamin D decreased [Unknown]
  - Cardiac valve disease [Unknown]
  - Syncope [Unknown]
  - Vertebral foraminal stenosis [Unknown]
  - Bone loss [Unknown]
  - Device loosening [Unknown]

NARRATIVE: CASE EVENT DATE: 199807
